FAERS Safety Report 9055305 (Version 1)
Quarter: 2013Q1

REPORT INFORMATION
  Report Type: Spontaneous
  Country: FR (occurrence: FR)
  Receive Date: 20130206
  Receipt Date: 20130206
  Transmission Date: 20140127
  Serious: Yes (Other)
  Sender: FDA-Public Use
  Company Number: FR-ROCHE-1183510

PATIENT
  Sex: Male
  Weight: 105 kg

DRUGS (5)
  1. PEGASYS [Suspect]
     Indication: HEPATITIS C
     Route: 065
     Dates: start: 20120601
  2. PEGASYS [Suspect]
     Route: 065
  3. PEGASYS [Suspect]
     Route: 065
  4. COPEGUS [Suspect]
     Indication: HEPATITIS C
     Route: 065
     Dates: start: 20120601
  5. VICTRELIS [Suspect]
     Indication: HEPATITIS C
     Route: 048
     Dates: start: 20120901

REACTIONS (5)
  - Cell death [Not Recovered/Not Resolved]
  - Depression [Recovered/Resolved]
  - Psoriasis [Recovered/Resolved]
  - Neutropenia [Recovering/Resolving]
  - Arthralgia [Recovered/Resolved]
